FAERS Safety Report 7015705-6 (Version None)
Quarter: 2010Q3

REPORT INFORMATION
  Report Type: 
  Country: None (occurrence: None)
  Receive Date: 20100927
  Receipt Date: 20091119
  Transmission Date: 20110219
  Serious: No
  Sender: FDA-Public Use
  Company Number: US-ASTRAZENECA-2009SE27595

PATIENT
  Age: 66 Year
  Sex: Female

DRUGS (2)
  1. ARIMIDEX [Suspect]
     Indication: NEOPLASM
     Route: 048
     Dates: start: 20060101
  2. LEXAPRO [Concomitant]

REACTIONS (2)
  - GALLBLADDER OPERATION [None]
  - MEDICATION RESIDUE [None]
